FAERS Safety Report 4714183-7 (Version None)
Quarter: 2005Q2

REPORT INFORMATION
  Report Type: 
  Country: None (occurrence: None)
  Receive Date: 20050630
  Receipt Date: 20040503
  Transmission Date: 20051028
  Serious: Yes (Other)
  Sender: FDA-Public Use
  Company Number: WAES 0402USA00531

PATIENT
  Age: 91 Year
  Sex: Female
  Weight: 53.978 kg

DRUGS (1)
  1. HYZAAR [Suspect]
     Dosage: PO
     Route: 048
     Dates: start: 20040126, end: 20040127

REACTIONS (1)
  - BLOOD GLUCOSE INCREASED [None]
